FAERS Safety Report 6713548-1 (Version None)
Quarter: 2010Q2

REPORT INFORMATION
  Report Type: 
  Country: None (occurrence: None)
  Receive Date: 20100503
  Receipt Date: 20100419
  Transmission Date: 20101027
  Serious: Yes (Hospitalization, Other)
  Sender: FDA-Public Use
  Company Number: 230002M10AUS

PATIENT
  Age: 45 Year
  Sex: Female

DRUGS (3)
  1. REBIF [Suspect]
     Indication: MULTIPLE SCLEROSIS
     Dosage: 44 MCG
     Dates: start: 20090601, end: 20091109
  2. IBUPROFEN [Concomitant]
  3. NEXIUM [Concomitant]

REACTIONS (8)
  - ANAEMIA [None]
  - BLOOD PRESSURE INCREASED [None]
  - DIALYSIS [None]
  - DIZZINESS [None]
  - NAUSEA [None]
  - RENAL FAILURE ACUTE [None]
  - THROMBOCYTOPENIA [None]
  - VOMITING [None]
